FAERS Safety Report 21769014 (Version 3)
Quarter: 2023Q1

REPORT INFORMATION
  Report Type: Spontaneous
  Country: AT (occurrence: AT)
  Receive Date: 20221222
  Receipt Date: 20230124
  Transmission Date: 20230417
  Serious: Yes (Other)
  Sender: FDA-Public Use
  Company Number: AT-CELLTRION INC.-2022AT020856

PATIENT

DRUGS (7)
  1. INFLIXIMAB [Suspect]
     Active Substance: INFLIXIMAB
     Indication: Autoinflammatory disease
     Dosage: 100 MG
  2. INFLIXIMAB [Suspect]
     Active Substance: INFLIXIMAB
     Indication: Scleritis
     Dosage: 525 MILLIGRAM
     Dates: start: 20221213
  3. INFLIXIMAB [Suspect]
     Active Substance: INFLIXIMAB
     Indication: Polychondritis
     Dosage: 525 MILLIGRAM
     Dates: start: 20221228
  4. PREDNISOLONE [Concomitant]
     Active Substance: PREDNISOLONE
     Indication: Episcleritis
  5. METHOTREXATE [Concomitant]
     Active Substance: METHOTREXATE
  6. AZATHIOPRINE [Concomitant]
     Active Substance: AZATHIOPRINE
  7. ADALIMUMAB [Concomitant]
     Active Substance: ADALIMUMAB
     Dosage: UNK
     Dates: start: 202208

REACTIONS (4)
  - Scleritis [Unknown]
  - Polychondritis [Unknown]
  - Autoinflammatory disease [Unknown]
  - Off label use [Unknown]

NARRATIVE: CASE EVENT DATE: 20220101
